FAERS Safety Report 9448081 (Version 3)
Quarter: 2014Q1

REPORT INFORMATION
  Report Type: Spontaneous
  Country: IT (occurrence: IT)
  Receive Date: 20130808
  Receipt Date: 20140304
  Transmission Date: 20141002
  Serious: Yes (Hospitalization)
  Sender: FDA-Public Use
  Company Number: IT-009507513-1308ITA001822

PATIENT
  Age: 47 Year
  Sex: Male

DRUGS (3)
  1. ISENTRESS [Suspect]
     Indication: HIV INFECTION
     Dosage: 800 MG, DAILY
     Route: 048
     Dates: start: 20130531, end: 20130701
  2. TRUVADA [Suspect]
     Indication: HIV INFECTION
     Dosage: 445 MG, DAILY
     Route: 048
     Dates: start: 20130531, end: 20130701
  3. PARIET [Concomitant]
     Indication: EPIGASTRIC DISCOMFORT
     Dosage: UNK
     Route: 048
     Dates: start: 20130401, end: 20130701

REACTIONS (1)
  - Erythema multiforme [Recovering/Resolving]
